FAERS Safety Report 9705661 (Version 3)
Quarter: 2015Q3

REPORT INFORMATION
  Report Type: Spontaneous
  Country: US (occurrence: US)
  Receive Date: 20131122
  Receipt Date: 20150803
  Transmission Date: 20151125
  Serious: Yes (Hospitalization)
  Sender: FDA-Public Use
  Company Number: US-GILEAD-2008-0017570

PATIENT
  Age: 62 Year
  Sex: Female
  Weight: 53.98 kg

DRUGS (17)
  1. LISINOPRIL. [Concomitant]
     Active Substance: LISINOPRIL
     Route: 048
  2. TYLENOL [Concomitant]
     Active Substance: ACETAMINOPHEN
     Route: 048
  3. CENTRUM [Concomitant]
     Active Substance: VITAMINS
     Route: 048
  4. DEXAMETHASONE. [Concomitant]
     Active Substance: DEXAMETHASONE
     Route: 061
  5. SIMVASTATIN. [Concomitant]
     Active Substance: SIMVASTATIN
     Route: 048
  6. VOLTAREN [Concomitant]
     Active Substance: DICLOFENAC SODIUM
     Route: 061
  7. IRON [Concomitant]
     Active Substance: IRON
  8. TRAMADOL. [Concomitant]
     Active Substance: TRAMADOL
  9. TUMS [Concomitant]
     Active Substance: CALCIUM CARBONATE
  10. CLARITIN [Concomitant]
     Active Substance: LORATADINE
     Route: 048
  11. SULINDAC. [Concomitant]
     Active Substance: SULINDAC
  12. FLONASE SPR 0.05% [Concomitant]
     Route: 055
  13. PRILOSEC [Concomitant]
     Active Substance: OMEPRAZOLE MAGNESIUM
     Route: 048
  14. CALCIUM [Concomitant]
     Active Substance: CALCIUM
     Route: 048
  15. ASPIRIN. [Concomitant]
     Active Substance: ASPIRIN
     Route: 048
  16. LETAIRIS [Suspect]
     Active Substance: AMBRISENTAN
     Indication: PULMONARY ARTERIAL HYPERTENSION
     Route: 048
     Dates: start: 20080711, end: 20080727
  17. NORVASC [Concomitant]
     Active Substance: AMLODIPINE BESYLATE
     Route: 048

REACTIONS (4)
  - Headache [None]
  - Peripheral swelling [Recovered/Resolved]
  - Dyspnoea [Recovered/Resolved]
  - Haemoglobin decreased [None]

NARRATIVE: CASE EVENT DATE: 20080719
